FAERS Safety Report 4283400-2 (Version None)
Quarter: 2004Q1

REPORT INFORMATION
  Report Type: 
  Country: None (occurrence: None)
  Receive Date: 20040115
  Receipt Date: 20031024
  Transmission Date: 20041129
  Serious: Yes (Death)
  Sender: FDA-Public Use
  Company Number: US-JNJFOC-20030903598

PATIENT
  Age: 83 Year
  Sex: Female
  Weight: 72 kg

DRUGS (6)
  1. DOXIL [Suspect]
     Indication: ENDOMETRIAL CANCER
     Dosage: 71 MG, 1 IN 4 WEEK, INTRAVENOUS
     Route: 042
     Dates: start: 20030325, end: 20030401
  2. ETOPOSIDE [Concomitant]
  3. PROCRIT (INJECTION) ERYTHROPOIETIN [Concomitant]
  4. DIGOXIN [Concomitant]
  5. PROPOXYNAP (DEXTROPROPOXYPHENE NAPSILATE) [Concomitant]
  6. AMBIAN (ZOLPIDEM TARTRATE) [Concomitant]

REACTIONS (2)
  - DYSPHAGIA [None]
  - MALIGNANT NEOPLASM PROGRESSION [None]
